FAERS Safety Report 8576011 (Version 2)
Quarter: 2014Q1

REPORT INFORMATION
  Report Type: Spontaneous
  Country: US (occurrence: US)
  Receive Date: 20120523
  Receipt Date: 20140113
  Transmission Date: 20141002
  Serious: Yes (Death, Hospitalization)
  Sender: FDA-Public Use
  Company Number: US-GLAXOSMITHKLINE-A0933109A

PATIENT
  Age: 70 Year
  Sex: Female

DRUGS (1)
  1. AVANDIA [Suspect]
     Indication: DIABETES MELLITUS
     Dosage: 4MG PER DAY
     Route: 048
     Dates: start: 2001, end: 20060628

REACTIONS (8)
  - Death [Fatal]
  - Cardiac failure congestive [Unknown]
  - Pneumothorax [Unknown]
  - Cerebrovascular accident [Unknown]
  - Cardiac arrest [Unknown]
  - Hemiplegia [Unknown]
  - Aphasia [Unknown]
  - Atrial fibrillation [Unknown]
